FAERS Safety Report 7543616-6 (Version None)
Quarter: 2011Q2

REPORT INFORMATION
  Report Type: 
  Country: None (occurrence: None)
  Receive Date: 20110613
  Receipt Date: 20110609
  Transmission Date: 20111010
  Serious: Yes (Hospitalization, Other)
  Sender: FDA-Public Use
  Company Number: DE-ABBOTT-10P-062-0688652-00

PATIENT
  Sex: Male
  Weight: 80 kg

DRUGS (7)
  1. DIGITOXIN TAB [Concomitant]
     Indication: ATRIAL FIBRILLATION
     Dosage: 0.07
  2. HUMIRA [Suspect]
     Indication: PSORIASIS
     Route: 058
     Dates: start: 20101027, end: 20101117
  3. SIMVASTATIN [Concomitant]
     Indication: PRODUCT USED FOR UNKNOWN INDICATION
  4. PANTOPRAZOLE [Concomitant]
     Indication: PRODUCT USED FOR UNKNOWN INDICATION
  5. ASPIRIN [Concomitant]
     Indication: PRODUCT USED FOR UNKNOWN INDICATION
  6. FINASTERID [Concomitant]
     Indication: PRODUCT USED FOR UNKNOWN INDICATION
  7. DIOVAN [Concomitant]
     Indication: PRODUCT USED FOR UNKNOWN INDICATION

REACTIONS (3)
  - ANGINA PECTORIS [None]
  - CORONARY ARTERY DISEASE [None]
  - HYPERTENSION [None]
